FAERS Safety Report 9276540 (Version 1)
Quarter: 2013Q2

REPORT INFORMATION
  Report Type: Spontaneous
  Country: US (occurrence: US)
  Receive Date: 20130507
  Receipt Date: 20130507
  Transmission Date: 20140414
  Serious: Yes (Other)
  Sender: FDA-Public Use
  Company Number: US-BAYER-2013-055752

PATIENT
  Age: 19 Year
  Sex: Female

DRUGS (1)
  1. MIRENA [Suspect]
     Indication: CONTRACEPTION
     Dosage: UNK
     Route: 015
     Dates: start: 201210

REACTIONS (5)
  - Pain in extremity [None]
  - Sciatica [None]
  - Dyspareunia [None]
  - Dizziness [None]
  - Upper extremity mass [Not Recovered/Not Resolved]
